FAERS Safety Report 11120660 (Version 3)
Quarter: 2015Q3

REPORT INFORMATION
  Report Type: Spontaneous
  Country: US (occurrence: US)
  Receive Date: 20150519
  Receipt Date: 20150701
  Transmission Date: 20151125
  Serious: Yes (Hospitalization, Other)
  Sender: FDA-Public Use
  Company Number: US-BAYER-2015-203864

PATIENT
  Age: 36 Year
  Sex: Female

DRUGS (2)
  1. MIRENA [Suspect]
     Active Substance: LEVONORGESTREL
     Indication: CONTRACEPTION
     Dosage: 20 MCG/24HR, CONT
     Route: 015
     Dates: start: 201412, end: 20150213
  2. MIRENA [Suspect]
     Active Substance: LEVONORGESTREL
     Indication: CONTRACEPTION
     Dosage: 20 MCG/24HR, CONT
     Route: 015
     Dates: start: 2009, end: 201407

REACTIONS (9)
  - Neoplasm malignant [None]
  - Device dislocation [None]
  - Gait disturbance [None]
  - Dizziness [None]
  - Device dislocation [Recovered/Resolved]
  - Cystitis noninfective [None]
  - Pain [Recovered/Resolved]
  - Genital haemorrhage [None]
  - Vulvovaginal pain [None]

NARRATIVE: CASE EVENT DATE: 201412
